FAERS Safety Report 4409465-2 (Version None)
Quarter: 2004Q3

REPORT INFORMATION
  Report Type: 
  Country: None (occurrence: None)
  Receive Date: 20040723
  Receipt Date: 20040708
  Transmission Date: 20050211
  Serious: Yes (Other)
  Sender: FDA-Public Use
  Company Number: 201168

PATIENT
  Age: 41 Year
  Sex: Male
  Weight: 83.9154 kg

DRUGS (5)
  1. AVONEX [Suspect]
     Indication: MULTIPLE SCLEROSIS
     Dosage: 30 MCG QW IM
     Route: 030
     Dates: start: 20040101
  2. VICODIN [Concomitant]
  3. NEURONTIN [Concomitant]
  4. KLONOPIN [Concomitant]
  5. MORPHINE [Concomitant]

REACTIONS (5)
  - ANOREXIA [None]
  - INFLUENZA LIKE ILLNESS [None]
  - OPTIC NEURITIS [None]
  - PYREXIA [None]
  - TREMOR [None]
